FAERS Safety Report 17834440 (Version 1)
Quarter: 2020Q2

REPORT INFORMATION
  Report Type: Report from Study
  Country: US (occurrence: US)
  Receive Date: 20200528
  Receipt Date: 20200528
  Transmission Date: 20200714
  Serious: No
  Sender: FDA-Public Use
  Company Number: US-BIOVITRUM-2020US1501

PATIENT
  Sex: Female

DRUGS (1)
  1. KINERET [Suspect]
     Active Substance: ANAKINRA
     Indication: JUVENILE IDIOPATHIC ARTHRITIS
     Route: 058
     Dates: start: 201906

REACTIONS (5)
  - Arthralgia [Unknown]
  - Injection site reaction [Recovering/Resolving]
  - Rash [Unknown]
  - Off label use [Not Recovered/Not Resolved]
  - Hyperhidrosis [Unknown]
